FAERS Safety Report 9954319 (Version 2)
Quarter: 2014Q1

REPORT INFORMATION
  Report Type: Spontaneous
  Country: AU (occurrence: AU)
  Receive Date: 20140304
  Receipt Date: 20140324
  Transmission Date: 20141002
  Serious: Yes (Other)
  Sender: FDA-Public Use
  Company Number: PHHY2014AU025944

PATIENT
  Age: 66 Year
  Sex: Female

DRUGS (5)
  1. ACLASTA [Suspect]
     Dosage: EVERY 18 MONTH
     Route: 042
  2. ACLASTA [Suspect]
     Dosage: EVERY 18 MONTH
     Route: 042
  3. ACLASTA [Suspect]
     Dosage: EVERY 18 MONTH
     Route: 042
  4. ACLASTA [Suspect]
     Dosage: EVERY 18 MONTH
     Route: 042
  5. ACLASTA [Suspect]
     Dosage: EVERY 18 MONTH
     Route: 042

REACTIONS (4)
  - Femur fracture [Unknown]
  - Bone disorder [Unknown]
  - Dysstasia [Unknown]
  - Muscular weakness [Unknown]
